FAERS Safety Report 6707756-3 (Version None)
Quarter: 2010Q2

REPORT INFORMATION
  Report Type: 
  Country: None (occurrence: None)
  Receive Date: 20100503
  Receipt Date: 20091201
  Transmission Date: 20101027
  Serious: No
  Sender: FDA-Public Use
  Company Number: US-ASTRAZENECA-2009SE29868

PATIENT
  Age: 622 Month
  Sex: Female
  Weight: 43.5 kg

DRUGS (4)
  1. NEXIUM [Suspect]
     Indication: GASTROINTESTINAL DISORDER
     Route: 048
  2. METHADONE HCL [Concomitant]
     Indication: BACK PAIN
  3. PREMARIN [Concomitant]
     Indication: PROPHYLAXIS
  4. TENORMIN [Concomitant]
     Indication: TACHYCARDIA

REACTIONS (1)
  - GASTROOESOPHAGEAL REFLUX DISEASE [None]
